FAERS Safety Report 23638188 (Version 3)
Quarter: 2025Q2

REPORT INFORMATION
  Report Type: Spontaneous
  Country: BE (occurrence: BE)
  Receive Date: 20240315
  Receipt Date: 20250416
  Transmission Date: 20250717
  Serious: Yes (Other)
  Sender: GILEAD
  Company Number: BE-GILEAD-2024-0665537

PATIENT
  Age: 56 Year
  Sex: Female

DRUGS (12)
  1. VEKLURY [Interacting]
     Active Substance: REMDESIVIR
     Indication: COVID-19
     Route: 042
     Dates: start: 20230107, end: 20230108
  2. VEKLURY [Interacting]
     Active Substance: REMDESIVIR
     Route: 042
     Dates: start: 20230107, end: 20230108
  3. PIPERACILLIN SODIUM\TAZOBACTAM SODIUM [Suspect]
     Active Substance: PIPERACILLIN SODIUM\TAZOBACTAM SODIUM
     Indication: Product used for unknown indication
     Route: 065
  4. ACYCLOVIR [Suspect]
     Active Substance: ACYCLOVIR
     Indication: Infection prophylaxis
     Route: 065
     Dates: start: 20221230
  5. PANTOPRAZOLE [Interacting]
     Active Substance: PANTOPRAZOLE
     Indication: Product used for unknown indication
     Route: 065
  6. URSODIOL [Suspect]
     Active Substance: URSODIOL
     Indication: Product used for unknown indication
     Route: 065
  7. URSODIOL [Suspect]
     Active Substance: URSODIOL
     Route: 065
  8. FLUCONAZOLE [Interacting]
     Active Substance: FLUCONAZOLE
     Indication: Infection prophylaxis
     Route: 065
     Dates: start: 20221230
  9. TACROLIMUS [Interacting]
     Active Substance: TACROLIMUS
     Indication: Immunosuppressant drug therapy
     Route: 065
  10. MYCOPHENOLIC ACID [Interacting]
     Active Substance: MYCOPHENOLIC ACID
     Indication: Immunosuppressant drug therapy
     Route: 065
  11. NIRMATRELVIR [Concomitant]
     Active Substance: NIRMATRELVIR
     Dosage: 600 MG/DAY
     Route: 065
     Dates: start: 20221226, end: 20221230
  12. RITONAVIR [Concomitant]
     Active Substance: RITONAVIR
     Dosage: (200MG/DAY)
     Route: 065
     Dates: start: 20221226, end: 20221230

REACTIONS (4)
  - Lactic acidosis [Recovered/Resolved]
  - Aspartate aminotransferase increased [Recovered/Resolved]
  - Alanine aminotransferase increased [Recovered/Resolved]
  - Off label use [Recovered/Resolved]
